FAERS Safety Report 8182210-3 (Version None)
Quarter: 2012Q1

REPORT INFORMATION
  Report Type: 
  Country: None (occurrence: None)
  Receive Date: 20120302
  Receipt Date: 20120222
  Transmission Date: 20120608
  Serious: Yes (Congenital Anomaly)
  Sender: FDA-Public Use
  Company Number: PHHY2011US90209

PATIENT

DRUGS (3)
  1. CARBAMAZEPINE [Suspect]
     Route: 064
  2. PHENYTOIN [Suspect]
     Route: 064
  3. TOPIRAMATE [Suspect]
     Route: 064

REACTIONS (5)
  - PULMONARY MALFORMATION [None]
  - SYNDACTYLY [None]
  - HEART DISEASE CONGENITAL [None]
  - BRAIN MALFORMATION [None]
  - FOETAL EXPOSURE DURING PREGNANCY [None]
